FAERS Safety Report 7317691 (Version 5)
Quarter: 2014Q1

REPORT INFORMATION
  Report Type: Spontaneous
  Country: US (occurrence: US)
  Receive Date: 20100312
  Receipt Date: 20140115
  Transmission Date: 20141002
  Serious: Yes (Hospitalization, Other)
  Sender: FDA-Public Use
  Company Number: US-BAYER-201015978NA

PATIENT
  Age: 19 Year
  Sex: Female
  Weight: 79.55 kg

DRUGS (7)
  1. YAZ [Suspect]
     Indication: PRODUCT USED FOR UNKNOWN INDICATION
     Dosage: PATIENT RECEIVED SAMPLES OF YASMIN IN SEP 2002 (2-3 MONTH SUPPLY)
     Route: 048
     Dates: start: 200209, end: 200301
  2. YASMIN [Suspect]
     Indication: PRODUCT USED FOR UNKNOWN INDICATION
     Route: 048
  3. PAXIL [Concomitant]
     Indication: POSTPARTUM DEPRESSION
     Route: 065
  4. LEXAPRO [Concomitant]
     Route: 065
  5. TRAZODONE [Concomitant]
     Indication: SLEEP DISORDER THERAPY
     Route: 065
  6. XANAX [Concomitant]
     Indication: ANXIETY
     Route: 065
  7. TORADOL [Concomitant]

REACTIONS (7)
  - Cholecystectomy [Unknown]
  - Complication of pregnancy [Unknown]
  - Kidney infection [Unknown]
  - Postpartum depression [Unknown]
  - Depression [Unknown]
  - Migraine [Not Recovered/Not Resolved]
  - Cholecystitis chronic [None]
